FAERS Safety Report 17087100 (Version 1)
Quarter: 2019Q4

REPORT INFORMATION
  Report Type: Other
  Country: US (occurrence: US)
  Receive Date: 20191128
  Receipt Date: 20191128
  Transmission Date: 20200122
  Serious: Yes (Death, Life-Threatening, Other)
  Sender: FDA-Public Use
  Company Number: US-DEXPHARM-20191040

PATIENT
  Age: 59 Year
  Sex: Male

DRUGS (8)
  1. EPIRUBICIN [Suspect]
     Active Substance: EPIRUBICIN
     Indication: ADENOCARCINOMA
     Dosage: NEOADJUVANT CHEMOTHERAPY ; CYCLICAL
  2. CAPECITABINE. [Suspect]
     Active Substance: CAPECITABINE
     Indication: ADENOCARCINOMA
     Dosage: NEOADJUVANT CHEMOTHERAPY ; CYCLICAL
  3. BEVACIZUMAB. [Suspect]
     Active Substance: BEVACIZUMAB
     Indication: ADENOCARCINOMA
     Dosage: CYCLICAL
  4. CISPLATIN. [Suspect]
     Active Substance: CISPLATIN
     Indication: ADENOCARCINOMA
     Dosage: NEOADJUVANT CHEMOTHERAPY ; CYCLICAL
  5. IRINOTECAN [Suspect]
     Active Substance: IRINOTECAN
     Indication: ADENOCARCINOMA
     Dosage: CYCLICAL
  6. DEXAMETHASONE. [Suspect]
     Active Substance: DEXAMETHASONE
     Indication: ADENOCARCINOMA
     Dosage: NEOADJUVANT CHEMOTHERAPY ; CYCLICAL
  7. DOCETAXEL. [Suspect]
     Active Substance: DOCETAXEL
     Indication: ADENOCARCINOMA
     Dosage: CYCLICAL
  8. BEVACIZUMAB. [Suspect]
     Active Substance: BEVACIZUMAB
     Indication: ADENOCARCINOMA
     Dosage: NEOADJUVANT CHEMOTHERAPY ; CYCLICAL

REACTIONS (3)
  - Mucosal inflammation [Unknown]
  - Cardio-respiratory arrest [Fatal]
  - Recall phenomenon [Unknown]
